FAERS Safety Report 4747735-9 (Version None)
Quarter: 2005Q3

REPORT INFORMATION
  Report Type: 
  Country: None (occurrence: None)
  Receive Date: 20050816
  Receipt Date: 20050726
  Transmission Date: 20060218
  Serious: Yes (Other)
  Sender: FDA-Public Use
  Company Number: 02100-USA-03-0191

PATIENT
  Age: 59 Year
  Sex: Male

DRUGS (9)
  1. PLETAL [Suspect]
     Indication: INTERMITTENT CLAUDICATION
     Dosage: 100 MG BID ORAL
     Route: 048
     Dates: start: 20030210, end: 20030404
  2. PLETAL [Suspect]
     Indication: INTERMITTENT CLAUDICATION
     Dosage: 50 MG BID ORAL
     Route: 048
     Dates: start: 20030210, end: 20030404
  3. HUMULIN 70/30 [Concomitant]
  4. DILTIAZEM HYDROCHLORIDE [Concomitant]
  5. LISINOPRIL [Concomitant]
  6. INDAPAMIDE [Concomitant]
  7. DOXAZOSIN [Concomitant]
  8. PRAVASTATIN SODIUM [Concomitant]
  9. PENTOXIFYLLINE [Concomitant]

REACTIONS (5)
  - HYPERSENSITIVITY [None]
  - NAUSEA [None]
  - OEDEMA PERIPHERAL [None]
  - THROAT TIGHTNESS [None]
  - VOMITING [None]
